FAERS Safety Report 5642937-1 (Version None)
Quarter: 2008Q1

REPORT INFORMATION
  Report Type: 
  Country: None (occurrence: None)
  Receive Date: 20080227
  Receipt Date: 20080227
  Transmission Date: 20080703
  Serious: Yes (Life-Threatening, Other)
  Sender: FDA-Public Use
  Company Number: None

PATIENT
  Age: 67 Year
  Sex: Male
  Weight: 81.6475 kg

DRUGS (1)
  1. AMBIEN CR [Suspect]
     Indication: SLEEP DISORDER
     Dosage: ONE BEFORE BEDTIME AS NEEDED PO  (DURATION: PERIODICALLY)
     Route: 048

REACTIONS (6)
  - CONTUSION [None]
  - LACERATION [None]
  - LOSS OF CONSCIOUSNESS [None]
  - PERIORBITAL HAEMATOMA [None]
  - ROAD TRAFFIC ACCIDENT [None]
  - SOMNOLENCE [None]
